FAERS Safety Report 7962452-X (Version None)
Quarter: 2011Q4

REPORT INFORMATION
  Report Type: 
  Country: None (occurrence: None)
  Receive Date: 20111207
  Receipt Date: 20111202
  Transmission Date: 20120403
  Serious: Yes (Other)
  Sender: FDA-Public Use
  Company Number: JP-PFIZER INC-2011250928

PATIENT
  Age: 56 Year
  Sex: Female

DRUGS (11)
  1. PRAMIPEXOLE DIHYDROCHLORIDE [Concomitant]
     Dosage: 1 MG, 3X/DAY
     Route: 048
  2. KENTAN [Concomitant]
     Dosage: 60 MG, 3X/DAY
  3. LYRICA [Suspect]
     Dosage: 75 MG PER DAY
     Route: 048
     Dates: start: 20110101
  4. ARTANE [Suspect]
     Indication: PARKINSON'S DISEASE
     Dosage: 2 MG, DAILY
     Route: 048
  5. VOLTAREN [Concomitant]
     Dosage: 50 MG
  6. LYRICA [Suspect]
     Indication: NEURALGIA
     Dosage: 75 MG, 2X/DAY
     Route: 048
     Dates: start: 20110916, end: 20110101
  7. MUCOSTA [Concomitant]
     Dosage: 1 DF, 3X/DAY
  8. SYMMETREL [Concomitant]
     Dosage: 100 MG, 2X/DAY
  9. MENEST [Concomitant]
     Dosage: 100 MG, 3X/DAY
     Route: 048
  10. MAGMITT [Concomitant]
     Dosage: 500 MG, 3X/DAY
     Route: 048
  11. MOTILIUM [Concomitant]
     Dosage: 10 MG, 2X/DAY

REACTIONS (2)
  - HEARING IMPAIRED [None]
  - SOMNOLENCE [None]
